FAERS Safety Report 26134633 (Version 2)
Quarter: 2025Q4

REPORT INFORMATION
  Report Type: Spontaneous
  Country: EU (occurrence: EU)
  Receive Date: 20251209
  Receipt Date: 20251215
  Transmission Date: 20260118
  Serious: Yes (Hospitalization, Other)
  Sender: BOEHRINGER INGELHEIM
  Company Number: EU-BoehringerIngelheim-2025-BI-112614

PATIENT
  Age: 85 Year
  Sex: Female

DRUGS (3)
  1. LINAGLIPTIN [Suspect]
     Active Substance: LINAGLIPTIN
     Indication: Product used for unknown indication
  2. LOSARTAN [Concomitant]
     Active Substance: LOSARTAN
     Indication: Hypertension
  3. FOLIC ACID [Concomitant]
     Active Substance: FOLIC ACID
     Indication: Hypertension

REACTIONS (3)
  - Hepatic cirrhosis [Unknown]
  - Gastric haemorrhage [Unknown]
  - Weight decreased [Unknown]
